FAERS Safety Report 8022689-0 (Version None)
Quarter: 2012Q1

REPORT INFORMATION
  Report Type: 
  Country: None (occurrence: None)
  Receive Date: 20120104
  Receipt Date: 20111229
  Transmission Date: 20120608
  Serious: Yes (Hospitalization)
  Sender: FDA-Public Use
  Company Number: US-GILEAD-2011-0048585

PATIENT
  Sex: Male

DRUGS (4)
  1. LETAIRIS [Suspect]
     Indication: SCLERODERMA
  2. REVATIO [Concomitant]
  3. LETAIRIS [Suspect]
     Indication: CONNECTIVE TISSUE DISORDER
  4. LETAIRIS [Suspect]
     Indication: PULMONARY HYPERTENSION
     Dosage: 5 MG, UNK
     Route: 048
     Dates: start: 20110602

REACTIONS (6)
  - DIARRHOEA [None]
  - SYNCOPE [None]
  - FATIGUE [None]
  - GASTROINTESTINAL DISORDER [None]
  - SCLERODERMA [None]
  - HAEMOGLOBIN DECREASED [None]
